FAERS Safety Report 5638140-1 (Version None)
Quarter: 2008Q1

REPORT INFORMATION
  Report Type: 
  Country: None (occurrence: None)
  Receive Date: 20080221
  Receipt Date: 20080204
  Transmission Date: 20080703
  Serious: Yes (Congenital Anomaly, Other)
  Sender: FDA-Public Use
  Company Number: TRP_01056_2008

PATIENT

DRUGS (8)
  1. RIBASPHERE [Suspect]
     Indication: HEPATITIS C
     Dosage: (800 MG QD ORAL)
     Route: 048
     Dates: start: 20060501, end: 20070318
  2. PEGINTERFERON ALFA [Suspect]
     Indication: DRUG USE FOR UNKNOWN INDICATION
     Dosage: (180 UG 1X/WEEK)
     Dates: start: 20060501, end: 20070318
  3. METHADONE HCL [Concomitant]
  4. ADDERALL 10 [Concomitant]
  5. VITAMIN AND MINERAL PRENATAL SUPPLEMENT W/ FOLIC ACID CAP [Concomitant]
  6. VALTREX [Concomitant]
  7. ALBUTEROL [Concomitant]
  8. KLONOPIN [Concomitant]

REACTIONS (6)
  - CONSTIPATION [None]
  - DRUG EXPOSURE BEFORE PREGNANCY [None]
  - FOETAL GROWTH RETARDATION [None]
  - PREGNANCY [None]
  - SINGLE UMBILICAL ARTERY [None]
  - SMOKER [None]
